FAERS Safety Report 7755121-2 (Version None)
Quarter: 2011Q3

REPORT INFORMATION
  Report Type: 
  Country: None (occurrence: None)
  Receive Date: 20110916
  Receipt Date: 20110912
  Transmission Date: 20111222
  Serious: Yes (Other)
  Sender: FDA-Public Use
  Company Number: US-PFIZER INC-2011214591

PATIENT
  Age: 60 Year
  Sex: Female
  Weight: 61.22 kg

DRUGS (4)
  1. EFFEXOR XR [Suspect]
     Indication: MAJOR DEPRESSION
     Dosage: 112.5 MG, 1X/DAY
     Route: 048
     Dates: start: 20090101
  2. BUSPIRONE [Concomitant]
     Dosage: 30 MG, 1X/DAY
  3. ANTABUSE [Concomitant]
     Indication: ALCOHOLISM
     Dosage: 250 MG, 1X/DAY
     Route: 048
     Dates: start: 20090101
  4. LEVOTHYROXINE [Concomitant]
     Dosage: UNK

REACTIONS (1)
  - NEUROPATHY PERIPHERAL [None]
